FAERS Safety Report 16389927 (Version 1)
Quarter: 2019Q2

REPORT INFORMATION
  Report Type: Spontaneous
  Country: None (occurrence: US)
  Receive Date: 20190604
  Receipt Date: 20190604
  Transmission Date: 20190711
  Serious: No
  Sender: FDA-Public Use
  Company Number: US-AKRON, INC.-2067771

PATIENT
  Sex: Female

DRUGS (1)
  1. CROMOLYN SODIUM OPHTHALMIC SOLUTION [Suspect]
     Active Substance: CROMOLYN SODIUM

REACTIONS (1)
  - Eye irritation [None]
